FAERS Safety Report 9494842 (Version 1)
Quarter: 2013Q3

REPORT INFORMATION
  Report Type: Spontaneous
  Country: US (occurrence: None)
  Receive Date: 20130830
  Receipt Date: 20130830
  Transmission Date: 20140515
  Serious: Yes (Life-Threatening, Hospitalization, Disabling)
  Sender: FDA-Public Use
  Company Number: None

PATIENT
  Age: 81 Year
  Sex: Male
  Weight: 81.8 kg

DRUGS (4)
  1. PRADAXA, 150 MG, BOEHRINGER INGELHEIM [Suspect]
     Indication: ATRIAL FIBRILLATION
     Route: 048
     Dates: start: 201105, end: 201208
  2. CARVEDILOL [Concomitant]
  3. AMLODIPINE BESYLATE [Concomitant]
  4. GLIPIZIDE [Concomitant]

REACTIONS (4)
  - Haemorrhagic stroke [None]
  - Dialysis [None]
  - Lymphoma [None]
  - Hepatic mass [None]
